FAERS Safety Report 8702218 (Version 3)
Quarter: 2012Q4

REPORT INFORMATION
  Report Type: 
  Country: GB (occurrence: GB)
  Receive Date: 20120803
  Receipt Date: 20121008
  Transmission Date: 20130627
  Serious: Yes (Hospitalization, Other)
  Sender: FDA-Public Use
  Company Number: GB-PFIZER INC-2012182422

PATIENT
  Age: 53 Year
  Sex: Female

DRUGS (3)
  1. NEURONTIN [Suspect]
     Dosage: 500 mg, 3x/day
  2. TEGRETOL RETARD [Suspect]
     Indication: PARTIAL SEIZURES
     Dosage: 1000 mg, 1x/day
     Route: 048
     Dates: start: 2010
  3. GABAPENTIN [Concomitant]
     Indication: PARTIAL SEIZURES
     Dosage: 3 g, UNK

REACTIONS (2)
  - Circulatory collapse [Recovered/Resolved]
  - Hyponatraemia [Recovered/Resolved]
